FAERS Safety Report 6376017-7 (Version None)
Quarter: 2009Q3

REPORT INFORMATION
  Report Type: 
  Country: None (occurrence: None)
  Receive Date: 20090924
  Receipt Date: 20090915
  Transmission Date: 20100115
  Serious: Yes (Hospitalization)
  Sender: FDA-Public Use
  Company Number: PHHO2009TW10416

PATIENT
  Sex: Male

DRUGS (7)
  1. RAD001C [Suspect]
     Indication: HEPATIC NEOPLASM MALIGNANT
     Dosage: 5 MG, QD
     Route: 048
     Dates: start: 20090326, end: 20090730
  2. BLINDED NO TREATMENT RECEIVED NOMED [Suspect]
     Indication: HEPATIC NEOPLASM MALIGNANT
     Dosage: NO TREATMENT
  3. BLINDED PLACEBO COMP-PLA+ [Suspect]
     Indication: HEPATIC NEOPLASM MALIGNANT
     Dosage: NO TREATMENT
  4. BLINDED RAD 666 RAD+TAB [Suspect]
     Indication: HEPATIC NEOPLASM MALIGNANT
     Dosage: NO TREATMENT
  5. SORAFENIB [Suspect]
     Indication: HEPATIC NEOPLASM MALIGNANT
     Dosage: 400 MG, BID
     Route: 048
     Dates: start: 20090326, end: 20090731
  6. LORAZEPAM [Concomitant]
     Indication: INSOMNIA
     Dosage: 2.5 MG, UNK
     Dates: start: 20090326
  7. TRANEXAMIC ACID [Concomitant]
     Indication: HAEMORRHAGE PROPHYLAXIS
     Dosage: 250 MG, BID
     Route: 048
     Dates: start: 20090618

REACTIONS (7)
  - ALANINE AMINOTRANSFERASE INCREASED [None]
  - ASPARTATE AMINOTRANSFERASE INCREASED [None]
  - HEPATITIS C [None]
  - HEPATITIS C RNA INCREASED [None]
  - PSEUDOMONAS INFECTION [None]
  - PYREXIA [None]
  - RESPIRATORY TRACT INFECTION [None]
